FAERS Safety Report 15431944 (Version 13)
Quarter: 2019Q2

REPORT INFORMATION
  Report Type: Report from Study
  Country: US (occurrence: US)
  Receive Date: 20180926
  Receipt Date: 20190425
  Transmission Date: 20190711
  Serious: Yes (Other)
  Sender: FDA-Public Use
  Company Number: US-MALLINCKRODT-T201803499

PATIENT
  Age: 40 Year
  Sex: Male
  Weight: 88 kg

DRUGS (5)
  1. REPOSITORY CORTICOTROPIN INJECTION [Suspect]
     Active Substance: CORTICOTROPIN
     Dosage: 80 UNITS/1 ML, 2 TIMES PER WEEK (FRIDAY AND TUESDAY)
     Route: 058
     Dates: start: 2018
  2. REPOSITORY CORTICOTROPIN INJECTION [Suspect]
     Active Substance: CORTICOTROPIN
     Dosage: 80 UNITS/1 ML, 2 TIMES PER WEEK (FRIDAY AND TUESDAY)
     Route: 058
  3. REPOSITORY CORTICOTROPIN INJECTION [Suspect]
     Active Substance: CORTICOTROPIN
     Indication: GLOMERULONEPHRITIS MEMBRANOUS
     Dosage: 80 UNITS/1ML, 2 TIMES PER WEEK (SATURDAY AND TUESDAY)
     Route: 058
     Dates: start: 20180810, end: 20180829
  4. REPOSITORY CORTICOTROPIN INJECTION [Suspect]
     Active Substance: CORTICOTROPIN
     Dosage: 80 UNITS/1ML, 2 TIMES PER WEEK (FRIDAY AND TUESDAY)
     Route: 058
     Dates: start: 2018, end: 2018
  5. REPOSITORY CORTICOTROPIN INJECTION [Suspect]
     Active Substance: CORTICOTROPIN
     Indication: NEPHROTIC SYNDROME
     Dosage: 80 UNITS/1ML, 2 TIMES PER WEEK (SATURDAY AND TUESDAY)
     Route: 058
     Dates: start: 20180914, end: 2018

REACTIONS (24)
  - Haemoglobin decreased [Not Recovered/Not Resolved]
  - Oedema peripheral [Not Recovered/Not Resolved]
  - Injection site haemorrhage [Recovered/Resolved]
  - Product dose omission [Not Recovered/Not Resolved]
  - Ascites [Unknown]
  - Renal impairment [Unknown]
  - Blood glucose increased [Not Recovered/Not Resolved]
  - Ear infection [Not Recovered/Not Resolved]
  - Blood potassium decreased [Not Recovered/Not Resolved]
  - Cataract [Not Recovered/Not Resolved]
  - Malaise [Not Recovered/Not Resolved]
  - Increased appetite [Not Recovered/Not Resolved]
  - Eye haemorrhage [Unknown]
  - Weight increased [Recovering/Resolving]
  - Abdominal pain [Not Recovered/Not Resolved]
  - Irritability [Not Recovered/Not Resolved]
  - Swelling face [Not Recovered/Not Resolved]
  - Eye operation [Not Recovered/Not Resolved]
  - Device malfunction [Unknown]
  - Blood glucose decreased [Not Recovered/Not Resolved]
  - Injection site pain [Not Recovered/Not Resolved]
  - Depressed mood [Not Recovered/Not Resolved]
  - Blood cholesterol increased [Not Recovered/Not Resolved]
  - Blood calcium decreased [Not Recovered/Not Resolved]

NARRATIVE: CASE EVENT DATE: 2018
